FAERS Safety Report 6059255-2 (Version None)
Quarter: 2009Q1

REPORT INFORMATION
  Report Type: 
  Country: None (occurrence: None)
  Receive Date: 20090130
  Receipt Date: 20090121
  Transmission Date: 20090719
  Serious: Yes (Hospitalization, Other)
  Sender: FDA-Public Use
  Company Number: US-MERCK-0803USA03008

PATIENT
  Age: 63 Year
  Sex: Female

DRUGS (1)
  1. FOSAMAX [Suspect]
     Indication: OSTEOPOROSIS
     Route: 048
     Dates: start: 19960101, end: 20050316

REACTIONS (19)
  - ABNORMAL LOSS OF WEIGHT [None]
  - ACTINOMYCOSIS [None]
  - ACUTE HEPATIC FAILURE [None]
  - ADVERSE DRUG REACTION [None]
  - ANAL FISSURE [None]
  - ANXIETY [None]
  - CLOSTRIDIUM DIFFICILE COLITIS [None]
  - DEPRESSION [None]
  - DIARRHOEA HAEMORRHAGIC [None]
  - DYSGEUSIA [None]
  - EAR DISORDER [None]
  - FEMUR FRACTURE [None]
  - HAEMATOCHEZIA [None]
  - JAW DISORDER [None]
  - OSTEOMYELITIS [None]
  - OSTEONECROSIS [None]
  - OTITIS EXTERNA [None]
  - PERIODONTITIS [None]
  - RESORPTION BONE INCREASED [None]
